FAERS Safety Report 9562496 (Version 2)
Quarter: 2013Q4

REPORT INFORMATION
  Report Type: Spontaneous
  Country: CH (occurrence: CH)
  Receive Date: 20130927
  Receipt Date: 20131108
  Transmission Date: 20140711
  Serious: Yes (Hospitalization)
  Sender: FDA-Public Use
  Company Number: CH-PFIZER INC-2013275258

PATIENT
  Age: 93 Year
  Sex: Female
  Weight: 57 kg

DRUGS (6)
  1. TEMESTA [Suspect]
     Dosage: 1 MG, 1X/DAY
     Route: 048
     Dates: start: 2013
  2. PANTOPRAZOLE [Suspect]
     Dosage: 40 MG, 1X/DAY
     Route: 048
     Dates: start: 2013
  3. RABEPRAZOLE SODIUM [Suspect]
     Dosage: 10 MG, 1X/DAY
     Route: 048
     Dates: start: 20130802, end: 20130812
  4. SPASMO URGENIN NEO [Concomitant]
     Dosage: 1 DF, UNK
     Route: 048
  5. XALATAN [Concomitant]
     Dosage: UNK
     Route: 047
  6. XARELTO [Concomitant]
     Dosage: 15 MG, UNK
     Route: 048

REACTIONS (3)
  - Inappropriate antidiuretic hormone secretion [Recovered/Resolved]
  - Hyponatraemia [Recovered/Resolved]
  - Fall [Unknown]
